FAERS Safety Report 23654602 (Version 2)
Quarter: 2024Q2

REPORT INFORMATION
  Report Type: Spontaneous
  Country: US (occurrence: US)
  Receive Date: 20240320
  Receipt Date: 20240410
  Transmission Date: 20240715
  Serious: Yes (Other)
  Sender: FDA-Public Use
  Company Number: US-ACELLA PHARMACEUTICALS, LLC-2024ALO00048

PATIENT
  Sex: Female
  Weight: 72.574 kg

DRUGS (11)
  1. NP THYROID [Suspect]
     Active Substance: LEVOTHYROXINE\LIOTHYRONINE
     Indication: Hypothyroidism
     Dosage: 120 MG
     Route: 060
     Dates: start: 2011, end: 2016
  2. NP THYROID [Suspect]
     Active Substance: LEVOTHYROXINE\LIOTHYRONINE
     Indication: Autoimmune thyroiditis
     Dosage: 90 MG
     Route: 060
     Dates: start: 2016, end: 2019
  3. NP THYROID [Suspect]
     Active Substance: LEVOTHYROXINE\LIOTHYRONINE
     Dosage: 60 MG
     Route: 060
     Dates: start: 2019, end: 2021
  4. NP THYROID [Suspect]
     Active Substance: LEVOTHYROXINE\LIOTHYRONINE
     Dosage: 30 MG
     Route: 060
     Dates: start: 2021
  5. NP THYROID [Suspect]
     Active Substance: LEVOTHYROXINE\LIOTHYRONINE
     Dosage: 45 MG
     Route: 060
     Dates: end: 2023
  6. NP THYROID [Suspect]
     Active Substance: LEVOTHYROXINE\LIOTHYRONINE
     Dosage: 45 MG, 1X/DAY, ONE EVERY MORNING
     Route: 060
  7. NP THYROID [Suspect]
     Active Substance: LEVOTHYROXINE\LIOTHYRONINE
     Dosage: 30 MG, 1X/DAY EVERY MORNING
     Route: 060
     Dates: start: 2023, end: 202402
  8. NP THYROID [Suspect]
     Active Substance: LEVOTHYROXINE\LIOTHYRONINE
     Indication: Hypothyroidism
     Dosage: 45 MG, 1X/DAY EVERY MORNING
     Route: 048
     Dates: start: 202402
  9. NP THYROID [Suspect]
     Active Substance: LEVOTHYROXINE\LIOTHYRONINE
     Indication: Autoimmune thyroiditis
  10. BIOTIN [Suspect]
     Active Substance: BIOTIN
     Dosage: UNK
     Dates: end: 202309
  11. VITAMINS NOS [Concomitant]
     Active Substance: VITAMINS

REACTIONS (11)
  - Bradycardia [Not Recovered/Not Resolved]
  - Blood thyroid stimulating hormone increased [Unknown]
  - Hypotension [Not Recovered/Not Resolved]
  - Tooth restoration [Recovered/Resolved]
  - Laboratory test abnormal [Unknown]
  - Dizziness [Unknown]
  - Drug ineffective [Unknown]
  - Incorrect dose administered [Unknown]
  - Manufacturing materials issue [Unknown]
  - Product quality issue [Not Recovered/Not Resolved]
  - Incorrect route of product administration [Not Recovered/Not Resolved]

NARRATIVE: CASE EVENT DATE: 20140101
